FAERS Safety Report 16368477 (Version 2)
Quarter: 2019Q2

REPORT INFORMATION
  Report Type: Report from Study
  Country: ES (occurrence: ES)
  Receive Date: 20190529
  Receipt Date: 20190611
  Transmission Date: 20190711
  Serious: Yes (Death)
  Sender: FDA-Public Use
  Company Number: ES-GLAXOSMITHKLINE-ES2019GSK094938

PATIENT
  Age: 76 Year
  Sex: Male

DRUGS (2)
  1. IPRATROPIO [Concomitant]
     Active Substance: IPRATROPIUM BROMIDE
     Dosage: 150 MG, TID
     Route: 055
     Dates: start: 20180102, end: 20180213
  2. UMECLIDINIUM BR+VILANTEROL TRIFENATATE [Suspect]
     Active Substance: UMECLIDINIUM BROMIDE\VILANTEROL TRIFENATATE
     Indication: CHRONIC OBSTRUCTIVE PULMONARY DISEASE
     Dosage: UNK
     Route: 055
     Dates: start: 20170201, end: 20180213

REACTIONS (1)
  - Haemoptysis [Fatal]

NARRATIVE: CASE EVENT DATE: 20180102
